FAERS Safety Report 6597209-8 (Version None)
Quarter: 2010Q1

REPORT INFORMATION
  Report Type: 
  Country: None (occurrence: None)
  Receive Date: 20100223
  Receipt Date: 20100216
  Transmission Date: 20100710
  Serious: Yes (Hospitalization)
  Sender: FDA-Public Use
  Company Number: PHHO2009IT15284

PATIENT
  Sex: Female
  Weight: 59 kg

DRUGS (6)
  1. TASIGNA [Suspect]
     Indication: CHRONIC MYELOID LEUKAEMIA
     Dosage: 400 MG, BID
     Route: 048
     Dates: start: 20071121, end: 20071207
  2. TASIGNA [Suspect]
     Dosage: 400 MG, BID
     Route: 048
     Dates: start: 20071213, end: 20091123
  3. TASIGNA [Suspect]
     Dosage: UNK
     Dates: start: 20091124, end: 20091217
  4. TASIGNA [Suspect]
     Dosage: UNK
     Dates: start: 20091218
  5. BETA BLOCKING AGENTS [Concomitant]
  6. ACE INHIBITOR NOS [Concomitant]

REACTIONS (10)
  - ANGIOPLASTY [None]
  - ARTERIAL STENT INSERTION [None]
  - CHEST PAIN [None]
  - CORONARY ARTERY DISEASE [None]
  - DYSPNOEA [None]
  - ELECTROCARDIOGRAM ST SEGMENT ELEVATION [None]
  - HYPERHIDROSIS [None]
  - LEFT VENTRICULAR HYPERTROPHY [None]
  - MYOCARDIAL INFARCTION [None]
  - VASCULAR STENOSIS [None]
